FAERS Safety Report 8817274 (Version 1)
Quarter: 2012Q4

REPORT INFORMATION
  Report Type: 
  Country: US (occurrence: US)
  Receive Date: 20121004
  Receipt Date: 20121004
  Transmission Date: 20130627
  Serious: Yes (Other)
  Sender: FDA-Public Use
  Company Number: US-ELI_LILLY_AND_COMPANY-US201209007991

PATIENT
  Sex: Female

DRUGS (4)
  1. HUMALOG LISPRO [Suspect]
     Indication: TYPE 2 DIABETES MELLITUS
     Dosage: 3 u, unknown
  2. HUMALOG LISPRO [Suspect]
     Dosage: 4 u, unknown
  3. HUMALOG LISPRO [Suspect]
     Dosage: 3 u, unknown
  4. DECADRON                           /00016001/ [Concomitant]

REACTIONS (3)
  - Swollen tongue [Unknown]
  - Paraesthesia oral [Unknown]
  - Arthritis [Unknown]
